FAERS Safety Report 18707422 (Version 1)
Quarter: 2021Q1

REPORT INFORMATION
  Report Type: Spontaneous
  Country: US (occurrence: US)
  Receive Date: 20210106
  Receipt Date: 20210106
  Transmission Date: 20210419
  Serious: Yes (Life-Threatening, Hospitalization)
  Sender: FDA-Public Use
  Company Number: US-TEVA-2020-US-1865136

PATIENT
  Age: 52 Year
  Sex: Female

DRUGS (9)
  1. CYCLOPHOSPHAMIDE. [Concomitant]
     Active Substance: CYCLOPHOSPHAMIDE
     Indication: BREAST CANCER STAGE II
  2. TBO?FILGRASTIM [Concomitant]
     Active Substance: TBO-FILGRASTIM
     Indication: PROPHYLAXIS
     Dosage: ON POST?CHEMOHERAPY 2, 3
     Route: 065
  3. DEXRAZOXANE. [Suspect]
     Active Substance: DEXRAZOXANE
     Dosage: 500 MG/M2 ON SECOND AND THIRD POST?OPERATIVE DAY
     Route: 042
  4. TBO?FILGRASTIM [Concomitant]
     Active Substance: TBO-FILGRASTIM
     Indication: NEUTROPENIA
  5. DEXRAZOXANE. [Suspect]
     Active Substance: DEXRAZOXANE
     Indication: CHEMOTHERAPY EXTRAVASATION MANAGEMENT
     Dosage: 1000 MG/M2 ON FIRST POST?OPERATIVE DAY
     Route: 042
  6. CYCLOPHOSPHAMIDE. [Concomitant]
     Active Substance: CYCLOPHOSPHAMIDE
     Indication: TRIPLE NEGATIVE BREAST CANCER
     Dosage: 600MG/M2 RECEIVED 4 CYCLES
     Route: 065
  7. DOXORUBICIN [Suspect]
     Active Substance: DOXORUBICIN
     Indication: TRIPLE NEGATIVE BREAST CANCER
     Dosage: 60 MG/M2 RECEIVED 4 CYCLES
     Route: 065
  8. NORMAL SALINE [Concomitant]
     Active Substance: SODIUM CHLORIDE
     Indication: PRODUCT USED FOR UNKNOWN INDICATION
     Dosage: FOR FLUSHING OF ADMINISTRATION PORT
     Route: 065
  9. DOXORUBICIN [Suspect]
     Active Substance: DOXORUBICIN
     Indication: BREAST CANCER STAGE II

REACTIONS (5)
  - Pleural effusion [Recovering/Resolving]
  - Syncope [Unknown]
  - Neutropenia [Unknown]
  - Hypotension [Unknown]
  - Administration site extravasation [Recovering/Resolving]
